FAERS Safety Report 16596605 (Version 1)
Quarter: 2019Q3

REPORT INFORMATION
  Report Type: Spontaneous
  Country: GR (occurrence: GR)
  Receive Date: 20190719
  Receipt Date: 20190719
  Transmission Date: 20191004
  Serious: Yes (Other)
  Sender: FDA-Public Use
  Company Number: GR-ROCHE-2357593

PATIENT
  Sex: Female

DRUGS (4)
  1. RITUXIMAB. [Suspect]
     Active Substance: RITUXIMAB
     Indication: NEPHROTIC SYNDROME
     Route: 065
  2. METHYLPREDNISOLONE. [Suspect]
     Active Substance: METHYLPREDNISOLONE
     Indication: NEPHROTIC SYNDROME
     Route: 065
  3. CYCLOSPORIN [Concomitant]
     Active Substance: CYCLOSPORINE
     Indication: NEPHROTIC SYNDROME
     Route: 065
  4. CORTISONE [Suspect]
     Active Substance: CORTISONE
     Indication: NEPHROTIC SYNDROME
     Route: 065

REACTIONS (6)
  - Acute kidney injury [Unknown]
  - Intentional product use issue [Unknown]
  - Nephrotic syndrome [Unknown]
  - Off label use [Unknown]
  - Hodgkin^s disease [Recovering/Resolving]
  - Disease recurrence [Unknown]
